FAERS Safety Report 9067222 (Version 1)
Quarter: 2013Q1

REPORT INFORMATION
  Report Type: Report from Study
  Country: US (occurrence: US)
  Receive Date: 20130214
  Receipt Date: 20130214
  Transmission Date: 20140127
  Serious: Yes (Hospitalization, Disabling, Other)
  Sender: FDA-Public Use
  Company Number: US-BAYER-2013-008057

PATIENT
  Age: 83 Year
  Sex: Female
  Weight: 49 kg

DRUGS (14)
  1. STIVARGA [Suspect]
     Indication: COLON CANCER
     Dosage: 160 MG, QD
     Route: 048
     Dates: start: 20121201, end: 20121215
  2. LOPRESSOR [Concomitant]
     Dosage: 50 MG, QD
     Route: 048
  3. LEVOTHYROXINE SODIUM [Concomitant]
     Dosage: 0.075 MG, QD
     Route: 048
  4. FAMOTIDINE [Concomitant]
     Dosage: 50 MG, QD
  5. HYDROCHLORZIDE [Concomitant]
     Dosage: 25 MG, HS
  6. ASPIRIN [Concomitant]
     Dosage: 81 MG, QD
     Route: 048
  7. NITROGLYCERIN [Concomitant]
     Indication: CHEST PAIN
     Dosage: UNK UNK, PRN
  8. ZOCOR [Concomitant]
     Dosage: 20 MG, HS
     Route: 048
  9. ALBUTEROL [Concomitant]
     Dosage: UNK UNK, QD
  10. CALCIUM W/VITAMIN D NOS [Concomitant]
  11. KLOR-CON [Concomitant]
     Dosage: 2 DF, QD
  12. KLOR-CON [Concomitant]
     Dosage: 1 DF, QD
  13. VITAMIN C [Concomitant]
  14. DEXAMETHASONE [Concomitant]
     Dosage: 4 MG, QD

REACTIONS (10)
  - Malaise [Recovering/Resolving]
  - Abasia [Recovering/Resolving]
  - Pain [None]
  - Nausea [None]
  - Vomiting [None]
  - Diarrhoea [None]
  - Asthenia [Recovering/Resolving]
  - Decreased appetite [Recovering/Resolving]
  - Dehydration [None]
  - Aphagia [Recovering/Resolving]
